FAERS Safety Report 8302839-9 (Version None)
Quarter: 2012Q2

REPORT INFORMATION
  Report Type: 
  Country: None (occurrence: None)
  Receive Date: 20120420
  Receipt Date: 20120416
  Transmission Date: 20120825
  Serious: Yes (Life-Threatening)
  Sender: FDA-Public Use
  Company Number: TR-FRI-1000029936

PATIENT
  Sex: Female

DRUGS (1)
  1. NEBIVOLOL [Suspect]
     Route: 048
     Dates: start: 20120401, end: 20120401

REACTIONS (1)
  - SUICIDE ATTEMPT [None]
